FAERS Safety Report 8578983-8 (Version None)
Quarter: 2012Q3

REPORT INFORMATION
  Report Type: 
  Country: None (occurrence: None)
  Receive Date: 20120808
  Receipt Date: 20120806
  Transmission Date: 20120928
  Serious: Yes (Death)
  Sender: FDA-Public Use
  Company Number: US-PFIZER INC-2012191882

PATIENT
  Age: 65 Year
  Sex: Female

DRUGS (7)
  1. PROTONIX [Concomitant]
     Dosage: 20 MG, UNK
  2. XALKORI [Suspect]
     Dosage: 250 MG, 2X/DAY, TAKE 1 CAPSULE BY MOUTH TWICE A DAY
     Route: 048
  3. ATORVASTATIN [Concomitant]
     Dosage: 40 MG, UNK
  4. ALBUTEROL [Concomitant]
     Dosage: 90 UG, UNK
  5. DOCUSATE SODIUM [Concomitant]
     Dosage: 100 MG, UNK
  6. WARFARIN [Concomitant]
     Dosage: 1 MG, UNK
  7. SUDAFED SINUS [Concomitant]

REACTIONS (1)
  - DEATH [None]
